FAERS Safety Report 5649264-7 (Version None)
Quarter: 2008Q1

REPORT INFORMATION
  Report Type: 
  Country: None (occurrence: None)
  Receive Date: 20080304
  Receipt Date: 20071121
  Transmission Date: 20080703
  Serious: No
  Sender: FDA-Public Use
  Company Number: US-BAYER-200715576NA

PATIENT
  Age: 41 Year
  Sex: Female
  Weight: 52 kg

DRUGS (5)
  1. ULTRAVIST 300 PHARMACY BULK PACKAGE [Suspect]
     Indication: COMPUTERISED TOMOGRAM
     Dosage: TOTAL DAILY DOSE: 90 ML
     Route: 042
     Dates: start: 20071120, end: 20071120
  2. EZ CAT [Concomitant]
     Indication: COMPUTERISED TOMOGRAM
     Route: 048
     Dates: start: 20071120, end: 20071120
  3. AMBIEN [Concomitant]
  4. SEROQUEL [Concomitant]
  5. CLONOPREN [Concomitant]

REACTIONS (3)
  - PRURITUS [None]
  - THROAT TIGHTNESS [None]
  - URTICARIA [None]
